FAERS Safety Report 7308574-8 (Version None)
Quarter: 2011Q1

REPORT INFORMATION
  Report Type: 
  Country: None (occurrence: None)
  Receive Date: 20110223
  Receipt Date: 20101228
  Transmission Date: 20110831
  Serious: Yes (Hospitalization, Other)
  Sender: FDA-Public Use
  Company Number: US-BAYER-200941648NA

PATIENT
  Sex: Female
  Weight: 59 kg

DRUGS (16)
  1. IBUPROFEN [Concomitant]
  2. AMOXICILLIN [Concomitant]
     Dosage: UNK
     Dates: start: 20071003
  3. PREDNISONE [Concomitant]
     Indication: TENDON INJURY
     Dates: start: 20071219, end: 20071228
  4. PREDNISONE [Concomitant]
     Indication: MENSTRUAL CYCLE MANAGEMENT
  5. ASCORBIC ACID [Concomitant]
     Dosage: INTERMITTENTLY MANY YEARS
  6. MEBENDAZOLE [Concomitant]
     Dosage: UNK
     Dates: start: 20071003
  7. YASMIN [Suspect]
     Indication: MENSTRUAL CYCLE MANAGEMENT
     Route: 048
     Dates: start: 20070901, end: 20071231
  8. MULTI-VITAMIN [Concomitant]
  9. ANTI-ASTHMATICS [Concomitant]
     Indication: ASTHMA
     Dates: start: 20050101
  10. OCELLA [Suspect]
     Indication: MENSTRUAL CYCLE MANAGEMENT
     Route: 048
     Dates: start: 20070901, end: 20071231
  11. ZYRTEC [Concomitant]
     Dates: start: 20020101
  12. INDOMETHACIN [Concomitant]
     Dosage: 75 MG ER, BID
     Dates: start: 20071224
  13. YAZ [Suspect]
     Indication: MENSTRUAL CYCLE MANAGEMENT
     Route: 048
     Dates: start: 20070901, end: 20071231
  14. ASMANEX TWISTHALER [Concomitant]
     Dates: start: 20050101
  15. ANTIBIOTICS [Concomitant]
  16. PREDNISONE [Concomitant]
     Dosage: 20 MG, UNK
     Dates: start: 20071219, end: 20071223

REACTIONS (10)
  - PLEURITIC PAIN [None]
  - ERYTHEMA [None]
  - DEEP VEIN THROMBOSIS [None]
  - FEELING HOT [None]
  - ANXIETY [None]
  - PULMONARY EMBOLISM [None]
  - PAIN IN EXTREMITY [None]
  - LOWER EXTREMITY MASS [None]
  - DYSPNOEA [None]
  - THROMBOPHLEBITIS SUPERFICIAL [None]
